FAERS Safety Report 5473527-1 (Version None)
Quarter: 2007Q4

REPORT INFORMATION
  Report Type: 
  Country: None (occurrence: None)
  Receive Date: 20071001
  Receipt Date: 20040615
  Transmission Date: 20080405
  Serious: Yes (Other)
  Sender: FDA-Public Use
  Company Number: US-PFIZER INC-2007056524

PATIENT
  Sex: Female

DRUGS (1)
  1. HALCION [Suspect]
     Indication: DENTAL OPERATION
     Dosage: DAILY DOSE:2.25MG-TEXT:SINGLE ADMINISTRATION

REACTIONS (1)
  - ALTERED STATE OF CONSCIOUSNESS [None]
